APPROVED DRUG PRODUCT: THEO-DUR
Active Ingredient: THEOPHYLLINE
Strength: 125MG
Dosage Form/Route: CAPSULE, EXTENDED RELEASE;ORAL
Application: A088016 | Product #001
Applicant: SCHERING CORP
Approved: Sep 10, 1985 | RLD: No | RS: No | Type: DISCN